FAERS Safety Report 10214650 (Version 2)
Quarter: 2014Q2

REPORT INFORMATION
  Report Type: Spontaneous
  Country: JP (occurrence: JP)
  Receive Date: 20140603
  Receipt Date: 20140611
  Transmission Date: 20141212
  Serious: Yes (Other)
  Sender: FDA-Public Use
  Company Number: JP-ASTRAZENECA-2014SE37143

PATIENT
  Age: 85 Year
  Sex: Female

DRUGS (11)
  1. NEXIUM [Suspect]
     Indication: PROPHYLAXIS AGAINST GASTROINTESTINAL ULCER
     Route: 048
     Dates: start: 20140519, end: 20140523
  2. NEXIUM [Suspect]
     Indication: GASTRIC ULCER
     Route: 048
     Dates: start: 20140519, end: 20140523
  3. CELECOX [Concomitant]
     Indication: FRACTURE PAIN
     Route: 048
     Dates: start: 20140508
  4. LOXONIN [Concomitant]
     Indication: FRACTURE PAIN
     Route: 062
     Dates: start: 20140519
  5. MOHRUS TAPE [Concomitant]
     Route: 062
     Dates: start: 20140509, end: 20140519
  6. NORVASC [Concomitant]
     Indication: HYPERTENSION
     Route: 048
  7. EDIROL [Concomitant]
     Indication: OSTEOPOROSIS
     Route: 048
  8. VITANEURIN [Concomitant]
     Route: 048
  9. ADETPHOS [Concomitant]
  10. CEPHADOL [Concomitant]
     Route: 048
  11. TRAVATANZ [Concomitant]
     Dosage: DAILY
     Route: 047

REACTIONS (4)
  - Skin swelling [Recovering/Resolving]
  - Generalised erythema [Recovering/Resolving]
  - Pruritus generalised [Recovering/Resolving]
  - Urticaria [Recovering/Resolving]
